FAERS Safety Report 7900995-5 (Version None)
Quarter: 2011Q4

REPORT INFORMATION
  Report Type: 
  Country: None (occurrence: None)
  Receive Date: 20111108
  Receipt Date: 20111102
  Transmission Date: 20120403
  Serious: Yes (Other)
  Sender: FDA-Public Use
  Company Number: CZ-PFIZER INC-2011269113

PATIENT
  Age: 43 Year
  Sex: Female

DRUGS (6)
  1. IMURAN [Concomitant]
     Dosage: UNK
     Dates: start: 19920101
  2. TOLTERODINE TARTRATE [Suspect]
     Indication: DYSURIA
     Dosage: 4 MG, 1X/DAY
     Dates: start: 20050101
  3. SOLU-MEDROL [Concomitant]
     Dosage: UNK
     Dates: start: 19920101
  4. PREDNISONE [Concomitant]
     Dosage: UNK
     Dates: start: 19920101
  5. TOVIAZ [Suspect]
     Indication: DYSURIA
     Dosage: 8 MG, 1X/DAY
  6. BETASERON [Concomitant]
     Dosage: UNK
     Dates: start: 19980101

REACTIONS (2)
  - ANTICHOLINERGIC SYNDROME [None]
  - DRY MOUTH [None]
